FAERS Safety Report 8770214 (Version 1)
Quarter: 2012Q4

REPORT INFORMATION
  Report Type: 
  Country: US (occurrence: US)
  Receive Date: 20120906
  Receipt Date: 20120906
  Transmission Date: 20130627
  Serious: Yes (Other)
  Sender: FDA-Public Use
  Company Number: US-ASTRAZENECA-2012SE65458

PATIENT
  Age: 67 Year
  Sex: Female

DRUGS (4)
  1. BRILINTA [Suspect]
     Indication: ACUTE CORONARY SYNDROME
     Route: 048
  2. ASPIRIN [Suspect]
     Route: 048
  3. HEPARIN [Suspect]
     Route: 058
  4. INTEGRALIN [Suspect]

REACTIONS (1)
  - Pericardial effusion [Unknown]
